FAERS Safety Report 19365071 (Version 1)
Quarter: 2021Q2

REPORT INFORMATION
  Report Type: Spontaneous
  Country: US (occurrence: US)
  Receive Date: 20210602
  Receipt Date: 20210602
  Transmission Date: 20210717
  Serious: Yes (Hospitalization)
  Sender: FDA-Public Use
  Company Number: None

PATIENT
  Age: 63 Year
  Sex: Female

DRUGS (17)
  1. LEVOTHYROXINE. [Concomitant]
     Active Substance: LEVOTHYROXINE
  2. AMOXICILLIN. [Concomitant]
     Active Substance: AMOXICILLIN
  3. HYDROCO/APAP [Concomitant]
     Active Substance: ACETAMINOPHEN\HYDROCODONE
  4. CITALOPRAM [Concomitant]
     Active Substance: CITALOPRAM HYDROBROMIDE
  5. DOCQULACE [Concomitant]
  6. EMEND [Concomitant]
     Active Substance: APREPITANT
  7. PHENAZOPYRID [Concomitant]
  8. REBIF [Suspect]
     Active Substance: INTERFERON BETA-1A
     Indication: MULTIPLE SCLEROSIS
     Route: 058
     Dates: start: 20201112
  9. CEPHALEXIN. [Concomitant]
     Active Substance: CEPHALEXIN
  10. POLEYTH GLYC [Concomitant]
  11. WARFARIN [Concomitant]
     Active Substance: WARFARIN
  12. KESIMPTA [Suspect]
     Active Substance: OFATUMUMAB
     Indication: MULTIPLE SCLEROSIS
  13. CLONAZEPAM. [Concomitant]
     Active Substance: CLONAZEPAM
  14. GABAPENTIN. [Concomitant]
     Active Substance: GABAPENTIN
  15. LEXAPRO [Concomitant]
     Active Substance: ESCITALOPRAM OXALATE
  16. SYNTHROID [Concomitant]
     Active Substance: LEVOTHYROXINE SODIUM
  17. SIMVASTATIN. [Concomitant]
     Active Substance: SIMVASTATIN

REACTIONS (1)
  - Hospitalisation [None]

NARRATIVE: CASE EVENT DATE: 20210531
